FAERS Safety Report 8906871 (Version 1)
Quarter: 2012Q4

REPORT INFORMATION
  Report Type: 
  Country: US (occurrence: US)
  Receive Date: 20121113
  Receipt Date: 20121113
  Transmission Date: 20130627
  Serious: No
  Sender: FDA-Public Use
  Company Number: US-AMGEN-USASP2012010937

PATIENT
  Age: 50 Year
  Sex: Female
  Weight: 88.89 kg

DRUGS (10)
  1. ENBREL [Suspect]
     Indication: PRODUCT USED FOR UNKNOWN INDICATION
     Dosage: 50 mg, qwk
  2. METHOTREXATE [Concomitant]
     Dosage: 2.5 mg, UNK
  3. NABUMETONE [Concomitant]
  4. VITAMIN B-1 [Concomitant]
  5. MULTIVITAMIN                       /00097801/ [Concomitant]
  6. VITAMIN E                          /00110501/ [Concomitant]
  7. FISH OIL [Concomitant]
     Dosage: 1400 mg, UNK
  8. PENNSAID [Concomitant]
  9. FOLIC ACID [Concomitant]
  10. D3 [Concomitant]

REACTIONS (2)
  - Tendonitis [Unknown]
  - Oedema peripheral [Unknown]
